FAERS Safety Report 18223401 (Version 1)
Quarter: 2020Q3

REPORT INFORMATION
  Report Type: Spontaneous
  Country: US (occurrence: US)
  Receive Date: 20200902
  Receipt Date: 20200902
  Transmission Date: 20201103
  Serious: No
  Sender: FDA-Public Use
  Company Number: US-BAUSCH-BL-2020-024084

PATIENT
  Age: 80 Year
  Sex: Female
  Weight: 69.01 kg

DRUGS (6)
  1. BRIMONIDINE [Concomitant]
     Active Substance: BRIMONIDINE TARTRATE
     Indication: PRODUCT USED FOR UNKNOWN INDICATION
     Route: 047
  2. DORZOLAMIDE HCL [Concomitant]
     Active Substance: DORZOLAMIDE HYDROCHLORIDE
     Indication: PRODUCT USED FOR UNKNOWN INDICATION
     Route: 047
  3. CALCIUM/MAGNESIUM/VITAMIN D [Concomitant]
     Indication: PRODUCT USED FOR UNKNOWN INDICATION
     Dosage: AS DIRECTED
     Route: 048
  4. BILBERRY [Concomitant]
     Active Substance: BILBERRY
     Indication: PRODUCT USED FOR UNKNOWN INDICATION
     Route: 048
  5. LATANOPROST OPHTHALMIC SOLUTION 0.005% [Suspect]
     Active Substance: LATANOPROST
     Indication: GLAUCOMA
     Dosage: APPROXIMATELY 5 YEARS AGO
     Route: 047
     Dates: start: 2015
  6. COLLAGEN [Concomitant]
     Active Substance: COLLAGEN
     Indication: PRODUCT USED FOR UNKNOWN INDICATION
     Route: 048

REACTIONS (2)
  - Feeling hot [Unknown]
  - Muscle tightness [Unknown]

NARRATIVE: CASE EVENT DATE: 2020
